FAERS Safety Report 7740172-4 (Version None)
Quarter: 2011Q3

REPORT INFORMATION
  Report Type: 
  Country: None (occurrence: None)
  Receive Date: 20110909
  Receipt Date: 20110901
  Transmission Date: 20111222
  Serious: Yes (Hospitalization, Other)
  Sender: FDA-Public Use
  Company Number: US-ABBOTT-11P-163-0851305-00

PATIENT
  Sex: Male
  Weight: 113.5 kg

DRUGS (10)
  1. HUMIRA [Suspect]
     Route: 058
     Dates: start: 20091101, end: 20110101
  2. AMARYL [Concomitant]
     Indication: DIABETES MELLITUS
  3. ZESTRIL [Concomitant]
     Indication: HYPERTENSION
  4. HUMIRA [Suspect]
     Indication: PSORIASIS
     Route: 058
     Dates: start: 20090401, end: 20090701
  5. LASIX [Concomitant]
     Indication: HYPERTENSION
  6. METHOTREXATE [Suspect]
     Indication: PSORIASIS
  7. RAPTIVA [Suspect]
     Indication: PSORIASIS
  8. LEVOXYL [Concomitant]
     Indication: HYPOTHYROIDISM
  9. ZOCOR [Concomitant]
     Indication: BLOOD CHOLESTEROL INCREASED
  10. CARVEDILOL [Concomitant]
     Indication: HYPERTENSION

REACTIONS (5)
  - ANAEMIA [None]
  - ASTHENIA [None]
  - RECTAL HAEMORRHAGE [None]
  - INTESTINAL T-CELL LYMPHOMA [None]
  - CEREBROVASCULAR ACCIDENT [None]
